FAERS Safety Report 10194793 (Version 4)
Quarter: 2015Q1

REPORT INFORMATION
  Report Type: Spontaneous
  Country: US (occurrence: US)
  Receive Date: 20140526
  Receipt Date: 20150205
  Transmission Date: 20150720
  Serious: Yes (Other)
  Sender: FDA-Public Use
  Company Number: US-AMGEN-USASP2014038219

PATIENT
  Age: 72 Year
  Sex: Female
  Weight: 69.84 kg

DRUGS (19)
  1. LEVOTHYROXIN [Concomitant]
     Active Substance: LEVOTHYROXINE
     Dosage: .075 MG, QD
     Dates: start: 2000
  2. FLUTICASONE PROPIONATE. [Concomitant]
     Active Substance: FLUTICASONE PROPIONATE
     Dosage: 50 MCG SPR DAILY 2 PUFFS
     Dates: start: 2000
  3. ALBUTEROL SULFATE. [Concomitant]
     Active Substance: ALBUTEROL SULFATE
     Dosage: 0.083% INHALATION DAILY 2 INHALATIONS
     Dates: start: 2000
  4. VITAMIN C [Concomitant]
     Active Substance: ASCORBIC ACID
     Dosage: 1000 MG, UNK
     Dates: start: 2000
  5. ENBREL [Suspect]
     Active Substance: ETANERCEPT
     Indication: RHEUMATOID ARTHRITIS
     Dosage: 25 MG, QWK
     Route: 065
     Dates: start: 20010218, end: 20140222
  6. METHOTREXATE [Concomitant]
     Active Substance: METHOTREXATE
     Dosage: 2.5 MG, UNK
     Dates: start: 2000
  7. FOLIC ACID. [Concomitant]
     Active Substance: FOLIC ACID
     Dosage: 1 MG, 1 TABLET DAILY
     Dates: start: 2000
  8. NATURAL FISH OIL [Concomitant]
     Dosage: 2000 MG, UNK
     Dates: start: 2000
  9. FLOVENT HFA [Concomitant]
     Active Substance: FLUTICASONE PROPIONATE
     Dosage: 220 MCG DAILY 2 INHALATIONS
     Dates: start: 2000
  10. TRIAMTEREEN/HYDROCHLOORTHIAZIDE [Concomitant]
     Dosage: 37.5/25 TABLET DAILY 1 TAB
     Dates: start: 2000
  11. MSM [Concomitant]
     Active Substance: DIMETHYL SULFONE
     Dosage: 100 MG, UNK
     Dates: start: 2000
  12. CALCIUM [Concomitant]
     Active Substance: CALCIUM
     Dosage: 600 MG, UNK
     Dates: start: 2000
  13. FELODIPINE. [Concomitant]
     Active Substance: FELODIPINE
     Dosage: 5 MG ER DAILY 1 TAB
     Dates: start: 2000
  14. GLUCOSAMINE SULPHATE [Concomitant]
     Active Substance: GLUCOSAMINE
     Dosage: 1500 MG, UNK
     Dates: start: 2000
  15. MAGNESIUM [Concomitant]
     Active Substance: MAGNESIUM
     Dosage: 500 MG, UNK
     Dates: start: 2000
  16. VITAMIN B-6 [Concomitant]
     Active Substance: PYRIDOXINE
     Dosage: 50 MG, UNK
     Dates: start: 2000
  17. ATENOLOL. [Concomitant]
     Active Substance: ATENOLOL
     Dosage: 25 MG DAILY 2 TAB
     Dates: start: 2000
  18. LOSARTAN POTASSIUM. [Concomitant]
     Active Substance: LOSARTAN POTASSIUM
     Dosage: 100 MG, QD 1 TAB
     Dates: start: 2000
  19. VITAMIN B12 [Concomitant]
     Active Substance: CYANOCOBALAMIN
     Dosage: 500 MCG
     Dates: start: 2000

REACTIONS (2)
  - Tongue neoplasm [Unknown]
  - Adverse reaction [Unknown]

NARRATIVE: CASE EVENT DATE: 20140326
